FAERS Safety Report 8811249 (Version 2)
Quarter: 2012Q4

REPORT INFORMATION
  Report Type: 
  Country: AU (occurrence: AU)
  Receive Date: 20120927
  Receipt Date: 20121001
  Transmission Date: 20130627
  Serious: Yes (Other)
  Sender: FDA-Public Use
  Company Number: PHHY2012AU082224

PATIENT
  Age: 75 Year
  Sex: Female

DRUGS (20)
  1. ACLASTA [Suspect]
     Dosage: 5 mg
     Route: 042
     Dates: start: 20120912
  2. CALTRATE PLUS [Concomitant]
     Dosage: 600 mg, in morning
  3. CALTRATE PLUS [Concomitant]
     Dosage: 200 IU, in morning
  4. CALTRATE PLUS [Concomitant]
     Dosage: 50 mg, in morning
  5. CALTRATE PLUS [Concomitant]
     Dosage: 7.5 mg, in morning
  6. CALTRATE PLUS [Concomitant]
     Dosage: 1 mg, in morning
  7. CALTRATE PLUS [Concomitant]
     Dosage: 1.8 mg, in morning
  8. DANTRIUM [Concomitant]
     Dosage: 1 DF, in morning
  9. ELOCON [Concomitant]
     Dosage: 2 DF, UNK
  10. ESTRADOT [Concomitant]
     Dosage: UNK UKN, twice weekly
     Route: 062
  11. LYRICA [Concomitant]
     Dosage: 1 DF, BID
  12. MOBIC [Concomitant]
     Dosage: 1 DF, UNK
  13. NORGESIC [Concomitant]
     Dosage: 35 mg, PRN
  14. NORGESIC [Concomitant]
     Dosage: 450 mg, PRN
  15. NYOGEL [Concomitant]
     Dosage: i mg/g in morning
  16. PANAMAX [Concomitant]
     Dosage: 2 DF, QID
  17. PROTHIADEN [Concomitant]
     Dosage: 1 DF, before bed
  18. SOMAC [Concomitant]
     Dosage: 1 DF, BID
  19. TEMAZE [Concomitant]
     Dosage: 1 DF, PRN
  20. VITAMIN D3 [Concomitant]
     Dosage: 1 DF, monthly

REACTIONS (13)
  - Pancreatitis [Recovered/Resolved]
  - Vomiting [Recovering/Resolving]
  - Back pain [Recovered/Resolved]
  - Abdominal pain upper [Recovered/Resolved]
  - Chills [Recovering/Resolving]
  - Headache [Recovered/Resolved]
  - Feeling abnormal [Recovering/Resolving]
  - Rhinorrhoea [Recovering/Resolving]
  - Nausea [Recovering/Resolving]
  - Pain [Recovering/Resolving]
  - Malaise [Recovering/Resolving]
  - Feeling cold [Recovered/Resolved]
  - Fatigue [Recovering/Resolving]
